FAERS Safety Report 7623468-6 (Version None)
Quarter: 2011Q3

REPORT INFORMATION
  Report Type: 
  Country: None (occurrence: None)
  Receive Date: 20110720
  Receipt Date: 20110713
  Transmission Date: 20111222
  Serious: Yes (Death, Hospitalization, Other)
  Sender: FDA-Public Use
  Company Number: PHHY2011SE63059

PATIENT
  Age: 25 Year
  Sex: Female

DRUGS (3)
  1. VENLAFAXINE [Suspect]
  2. HERBAL BLEND KRYPTON [Suspect]
  3. ZOPICLONE [Suspect]

REACTIONS (4)
  - PULMONARY CONGESTION [None]
  - TOXICITY TO VARIOUS AGENTS [None]
  - LOSS OF CONSCIOUSNESS [None]
  - CARDIAC ARREST [None]
